FAERS Safety Report 17410356 (Version 1)
Quarter: 2020Q1

REPORT INFORMATION
  Report Type: Spontaneous
  Country: AU (occurrence: AU)
  Receive Date: 20200212
  Receipt Date: 20200212
  Transmission Date: 20200409
  Serious: No
  Sender: FDA-Public Use
  Company Number: AU-EMD SERONO-9143556

PATIENT

DRUGS (2)
  1. MAVENCLAD [Suspect]
     Active Substance: CLADRIBINE
     Indication: MULTIPLE SCLEROSIS
     Dosage: YEAR ONE WEEK ONE THERAPY
     Dates: start: 20190826
  2. MAVENCLAD [Suspect]
     Active Substance: CLADRIBINE
     Dosage: YEAR ONE WEEK FIVE THERAPY
     Dates: start: 20191218

REACTIONS (6)
  - Mouth ulceration [Recovered/Resolved]
  - Herpes zoster [Unknown]
  - Lymphopenia [Unknown]
  - Hair texture abnormal [Recovered/Resolved]
  - Oral herpes [Unknown]
  - Mucosal dryness [Recovered/Resolved]

NARRATIVE: CASE EVENT DATE: 20190826
